FAERS Safety Report 6641779-8 (Version None)
Quarter: 2010Q1

REPORT INFORMATION
  Report Type: 
  Country: None (occurrence: None)
  Receive Date: 20100319
  Receipt Date: 20100315
  Transmission Date: 20100710
  Serious: Yes (Hospitalization)
  Sender: FDA-Public Use
  Company Number: ES-TEVA-227677ISR

PATIENT
  Age: 72 Year
  Sex: Male

DRUGS (3)
  1. MIRTAZAPINE [Interacting]
     Indication: MOOD ALTERED
  2. MIRTAZAPINE [Concomitant]
  3. LINEZOLID [Suspect]
     Indication: NOSOCOMIAL INFECTION

REACTIONS (2)
  - DRUG INTERACTION [None]
  - SEROTONIN SYNDROME [None]
